FAERS Safety Report 17100244 (Version 2)
Quarter: 2019Q4

REPORT INFORMATION
  Report Type: Spontaneous
  Country: JP (occurrence: JP)
  Receive Date: 20191202
  Receipt Date: 20191211
  Transmission Date: 20200122
  Serious: Yes (Hospitalization, Other)
  Sender: FDA-Public Use
  Company Number: JP-BRISTOL-MYERS SQUIBB COMPANY-BMS-2019-115041

PATIENT
  Age: 81 Year
  Sex: Male

DRUGS (2)
  1. ELIQUIS [Suspect]
     Active Substance: APIXABAN
     Indication: CEREBROVASCULAR ACCIDENT PROPHYLAXIS
     Dosage: 2.5 MILLIGRAM, BID
     Route: 048
     Dates: start: 201910, end: 20191108
  2. ELIQUIS [Suspect]
     Active Substance: APIXABAN
     Indication: PRODUCT USED FOR UNKNOWN INDICATION
     Dosage: 2.5 MILLIGRAM, QD (2 HOURS AFTER MEAL)
     Route: 048
     Dates: start: 20191109

REACTIONS (4)
  - Prescribed underdose [Unknown]
  - Renal failure [Not Recovered/Not Resolved]
  - Activated partial thromboplastin time prolonged [Unknown]
  - Prothrombin time ratio increased [Unknown]

NARRATIVE: CASE EVENT DATE: 20191109
